FAERS Safety Report 26121210 (Version 1)
Quarter: 2025Q4

REPORT INFORMATION
  Report Type: Spontaneous
  Country: US (occurrence: None)
  Receive Date: 20251203
  Receipt Date: 20251203
  Transmission Date: 20260118
  Serious: Yes (Hospitalization, Other)
  Sender: FDA-CTU
  Company Number: None

PATIENT
  Age: 34 Year
  Sex: Female
  Weight: 63.5 kg

DRUGS (9)
  1. OCREVUS [Suspect]
     Active Substance: OCRELIZUMAB
     Indication: Multiple sclerosis
  2. Wilexa Inhub powder for inhalation [Concomitant]
  3. VITAMIN D2 [Concomitant]
     Active Substance: ERGOCALCIFEROL
  4. VITAMINS [Concomitant]
     Active Substance: VITAMINS
  5. Albuterol sulfate HFA aerosol inhaler [Concomitant]
  6. OMEPRAZOLE [Concomitant]
     Active Substance: OMEPRAZOLE
  7. ANCEF [Concomitant]
     Active Substance: CEFAZOLIN SODIUM
  8. GENTAMICIN [Concomitant]
     Active Substance: GENTAMICIN
  9. AMPICILLIN [Concomitant]
     Active Substance: AMPICILLIN

REACTIONS (2)
  - Premature labour [None]
  - Maternal drugs affecting foetus [None]

NARRATIVE: CASE EVENT DATE: 20251024
